FAERS Safety Report 18643284 (Version 3)
Quarter: 2021Q2

REPORT INFORMATION
  Report Type: Spontaneous
  Country: US (occurrence: US)
  Receive Date: 20201221
  Receipt Date: 20210525
  Transmission Date: 20210717
  Serious: No
  Sender: FDA-Public Use
  Company Number: US-PFIZER INC-2020500402

PATIENT
  Age: 80 Year
  Sex: Male

DRUGS (1)
  1. BOSULIF [Suspect]
     Active Substance: BOSUTINIB MONOHYDRATE
     Dosage: 100 MG
     Dates: start: 20201210

REACTIONS (4)
  - Hypoacusis [Unknown]
  - Dysphonia [Unknown]
  - Pain [Unknown]
  - Haematoma [Unknown]

NARRATIVE: CASE EVENT DATE: 202012
